FAERS Safety Report 12676610 (Version 1)
Quarter: 2016Q3

REPORT INFORMATION
  Report Type: Spontaneous
  Country: US (occurrence: None)
  Receive Date: 20160822
  Receipt Date: 20160822
  Transmission Date: 20161109
  Serious: Yes (Other)
  Sender: FDA-Public Use
  Company Number: None

PATIENT
  Age: 68 Year
  Sex: Female

DRUGS (1)
  1. CIPROFLOXACIN, 500MG DR REDDY [Suspect]
     Active Substance: CIPROFLOXACIN
     Indication: LUNG INFECTION
     Route: 048

REACTIONS (1)
  - Ligament pain [None]

NARRATIVE: CASE EVENT DATE: 20160502
